FAERS Safety Report 11813782 (Version 1)
Quarter: 2015Q4

REPORT INFORMATION
  Report Type: Spontaneous
  Country: US (occurrence: None)
  Receive Date: 20151208
  Receipt Date: 20151208
  Transmission Date: 20160305
  Serious: Yes (Disabling)
  Sender: FDA-Public Use
  Company Number: None

PATIENT
  Age: 63 Year
  Sex: Female
  Weight: 65.77 kg

DRUGS (7)
  1. ASPRIN [Concomitant]
     Active Substance: ASPIRIN
  2. VITAMINS [Concomitant]
     Active Substance: VITAMINS
  3. NPH INSULIN [Suspect]
     Active Substance: INSULIN BEEF
     Indication: TYPE 1 DIABETES MELLITUS
     Dosage: 36 UNITS ONCE DAILY GIVEN INTO/UNDER THE SKIN
     Route: 058
  4. RAMIPRIL. [Concomitant]
     Active Substance: RAMIPRIL
  5. BISOPROLOL [Concomitant]
     Active Substance: BISOPROLOL
  6. LANTUS INSULNI [Concomitant]
  7. RAMIPRIL 5MG LUPIN [Suspect]
     Active Substance: RAMIPRIL
     Indication: CORONARY ARTERY BYPASS
     Route: 048

REACTIONS (8)
  - Dyspnoea [None]
  - Asthenia [None]
  - Feeling abnormal [None]
  - Product substitution issue [None]
  - Palpitations [None]
  - Documented hypersensitivity to administered product [None]
  - Nausea [None]
  - Reaction to drug excipients [None]

NARRATIVE: CASE EVENT DATE: 20150701
